FAERS Safety Report 15613425 (Version 1)
Quarter: 2018Q4

REPORT INFORMATION
  Report Type: Spontaneous
  Country: US (occurrence: US)
  Receive Date: 20181113
  Receipt Date: 20181113
  Transmission Date: 20190205
  Serious: Yes (Other)
  Sender: FDA-Public Use
  Company Number: US-PFIZER INC-2018456676

PATIENT
  Sex: Female

DRUGS (1)
  1. PREMARIN [Suspect]
     Active Substance: ESTROGENS, CONJUGATED
     Dosage: 5 MG, UNK

REACTIONS (6)
  - Type 2 diabetes mellitus [Unknown]
  - Depression [Unknown]
  - Arthropathy [Unknown]
  - Cardiac disorder [Unknown]
  - Diabetic neuropathy [Unknown]
  - Gallbladder disorder [Unknown]
